FAERS Safety Report 23093893 (Version 6)
Quarter: 2024Q2

REPORT INFORMATION
  Report Type: Report from Study
  Country: US (occurrence: US)
  Receive Date: 20231023
  Receipt Date: 20240415
  Transmission Date: 20240716
  Serious: Yes (Hospitalization, Other)
  Sender: FDA-Public Use
  Company Number: US-ABBVIE-5458370

PATIENT
  Age: 50 Year
  Sex: Male

DRUGS (4)
  1. VENCLEXTA [Suspect]
     Active Substance: VENETOCLAX
     Indication: Chronic lymphocytic leukaemia
     Dosage: TAKE TWO 10 MG TABS WITH FOOD DAILY WEEK 1?LAST ADMIN DATE: OCT 2023?FORM STRENGTH 10 MG
     Route: 048
     Dates: start: 20231003
  2. VENCLEXTA [Suspect]
     Active Substance: VENETOCLAX
     Indication: Chronic lymphocytic leukaemia
     Dosage: ONE 50MG TAB DAILY WEEK 2?FORM STRENGTH: 50 MG
     Route: 048
     Dates: start: 202310, end: 202310
  3. VENCLEXTA [Suspect]
     Active Substance: VENETOCLAX
     Indication: Chronic lymphocytic leukaemia
     Dosage: ONE 100MG TAB DAILY WEEK 3?FORM STRENGTH 100 MG?LAST ADMIN DATE: OCT 2023
     Route: 048
     Dates: start: 20231017
  4. VENCLEXTA [Suspect]
     Active Substance: VENETOCLAX
     Indication: Chronic lymphocytic leukaemia
     Dosage: ONE 100MG TAB DAILY WEEK 4?FORM STRENGTH: 100 MG
     Route: 048

REACTIONS (8)
  - Pleural effusion [Recovering/Resolving]
  - Rash [Recovering/Resolving]
  - Red blood cell count decreased [Not Recovered/Not Resolved]
  - Myalgia [Unknown]
  - Platelet count decreased [Recovering/Resolving]
  - Fatigue [Unknown]
  - Pruritus [Not Recovered/Not Resolved]
  - Neutrophil count decreased [Unknown]

NARRATIVE: CASE EVENT DATE: 20231001
